FAERS Safety Report 11440344 (Version 1)
Quarter: 2015Q3

REPORT INFORMATION
  Report Type: Spontaneous
  Country: US (occurrence: None)
  Receive Date: 20150831
  Receipt Date: 20150831
  Transmission Date: 20151125
  Serious: Yes (Hospitalization)
  Sender: FDA-Public Use
  Company Number: None

PATIENT
  Age: 77 Year
  Sex: Female
  Weight: 72.12 kg

DRUGS (17)
  1. OMEPRAZOLE. [Concomitant]
     Active Substance: OMEPRAZOLE
  2. ALIGN [Concomitant]
     Active Substance: BIFIDOBACTERIUM LONGUM SUBSP. INFANTIS
  3. SERTRALINE [Concomitant]
     Active Substance: SERTRALINE HYDROCHLORIDE
  4. UNITHROID [Concomitant]
     Active Substance: LEVOTHYROXINE SODIUM
  5. RANEXA [Concomitant]
     Active Substance: RANOLAZINE
  6. CARBIDOPA/ENTACAPONE/LEVODOPA [Concomitant]
     Active Substance: CARBIDOPA\ENTACAPONE\LEVODOPA
  7. WARFARIN [Concomitant]
     Active Substance: WARFARIN
  8. VITAMIN D3 [Concomitant]
     Active Substance: CHOLECALCIFEROL
  9. KEPPRA [Concomitant]
     Active Substance: LEVETIRACETAM
  10. LORAZEPAM. [Concomitant]
     Active Substance: LORAZEPAM
  11. ASPIRIN. [Concomitant]
     Active Substance: ASPIRIN
  12. SERTRALINE [Concomitant]
     Active Substance: SERTRALINE HYDROCHLORIDE
  13. PRALUENT [Suspect]
     Active Substance: ALIROCUMAB
     Indication: HYPERCHOLESTEROLAEMIA
     Dosage: EVERY 2 WEEKS
     Route: 058
     Dates: start: 20150825
  14. TOPIRAMATE. [Concomitant]
     Active Substance: TOPIRAMATE
  15. MULTIVITAMIN [Concomitant]
     Active Substance: VITAMINS
  16. IMDUR [Concomitant]
     Active Substance: ISOSORBIDE MONONITRATE
  17. ATENOLOL. [Concomitant]
     Active Substance: ATENOLOL

REACTIONS (7)
  - Loss of consciousness [None]
  - Mental status changes [None]
  - Vomiting [None]
  - Subarachnoid haemorrhage [None]
  - Syncope [None]
  - Malaise [None]
  - Pain in extremity [None]

NARRATIVE: CASE EVENT DATE: 20150825
